FAERS Safety Report 16266542 (Version 1)
Quarter: 2019Q2

REPORT INFORMATION
  Report Type: Spontaneous
  Country: US (occurrence: US)
  Receive Date: 20190502
  Receipt Date: 20190502
  Transmission Date: 20190711
  Serious: No
  Sender: FDA-Public Use
  Company Number: US-PERNIX THERAPEUTICS-US-2019PER000016

PATIENT

DRUGS (1)
  1. SILENOR [Suspect]
     Active Substance: DOXEPIN HYDROCHLORIDE
     Indication: ANXIETY
     Dosage: 6 MG, HS
     Route: 048
     Dates: start: 2018, end: 201901

REACTIONS (3)
  - Thinking abnormal [Recovered/Resolved]
  - Off label use [Unknown]
  - Middle insomnia [Not Recovered/Not Resolved]

NARRATIVE: CASE EVENT DATE: 2018
